FAERS Safety Report 8954642 (Version 1)
Quarter: 2012Q4

REPORT INFORMATION
  Report Type: 
  Country: US (occurrence: US)
  Receive Date: 20121207
  Receipt Date: 20121207
  Transmission Date: 20130627
  Serious: No
  Sender: FDA-Public Use
  Company Number: US-009507513-1212USA001349

PATIENT
  Age: 16 Year
  Sex: Female
  Weight: 53.61 kg

DRUGS (1)
  1. NUVARING [Suspect]
     Dosage: UNK
     Route: 067
     Dates: start: 20121127, end: 20121128

REACTIONS (2)
  - Rash generalised [Recovered/Resolved]
  - Oedema mouth [Recovered/Resolved]
